FAERS Safety Report 8236497-9 (Version None)
Quarter: 2012Q1

REPORT INFORMATION
  Report Type: 
  Country: None (occurrence: None)
  Receive Date: 20120327
  Receipt Date: 20120321
  Transmission Date: 20120608
  Serious: Yes (Death)
  Sender: FDA-Public Use
  Company Number: TH-ASTELLAS-2012JP002520

PATIENT
  Sex: Female

DRUGS (1)
  1. MICAFUNGIN [Suspect]
     Route: 065

REACTIONS (2)
  - HYPERBILIRUBINAEMIA [None]
  - DEATH [None]
